FAERS Safety Report 20943212 (Version 3)
Quarter: 2023Q2

REPORT INFORMATION
  Report Type: Spontaneous
  Country: US (occurrence: US)
  Receive Date: 20220610
  Receipt Date: 20230511
  Transmission Date: 20230722
  Serious: Yes (Disabling, Other)
  Sender: FDA-Public Use
  Company Number: US-EyePoint Pharmaceuticals, Inc.-US-EYP-22-00105

PATIENT
  Age: 64 Year
  Sex: Female

DRUGS (15)
  1. DEXYCU [Suspect]
     Active Substance: DEXAMETHASONE
     Indication: Cataract operation
     Dosage: INJECTED INTO THE SULCUS INFERIORLY?RIGHT EYE/OD
     Route: 031
     Dates: start: 20211208, end: 202112
  2. DEXYCU [Suspect]
     Active Substance: DEXAMETHASONE
     Dosage: INJECTED INTO THE SULCUS INFERIORLY?LEFT EYE/OS
     Route: 031
     Dates: start: 20211123
  3. MOXIFLOXACIN [Concomitant]
     Active Substance: MOXIFLOXACIN
     Indication: Product used for unknown indication
     Dosage: RIGHT EYE/OD
     Dates: start: 20211208
  4. LIDOCAINE HYDROCHLORIDE AND EPINEPHRINE BITARTRATE [Concomitant]
     Active Substance: EPINEPHRINE BITARTRATE\LIDOCAINE HYDROCHLORIDE
     Indication: Product used for unknown indication
     Dosage: RIGHT EYE/OD
     Dates: start: 20211208
  5. ELIQUIS [Concomitant]
     Active Substance: APIXABAN
     Indication: Factor V Leiden mutation
     Route: 048
  6. CITALOPRAM [Concomitant]
     Active Substance: CITALOPRAM HYDROBROMIDE
     Indication: Product used for unknown indication
     Dosage: EACH NIGHT AT BEDTIME
     Route: 048
  7. DEXAMETHASONE [Concomitant]
     Active Substance: DEXAMETHASONE
     Indication: Product used for unknown indication
     Route: 031
     Dates: start: 20220104
  8. GATIFLOXACIN [Concomitant]
     Active Substance: GATIFLOXACIN
     Indication: Product used for unknown indication
  9. BIOTIN [Concomitant]
     Active Substance: BIOTIN
     Indication: Product used for unknown indication
     Route: 048
  10. CHOLECALCIFEROL [Concomitant]
     Active Substance: CHOLECALCIFEROL
     Indication: Product used for unknown indication
  11. MONTELUKAST [Concomitant]
     Active Substance: MONTELUKAST SODIUM
     Indication: Product used for unknown indication
  12. PROGESTERONE [Concomitant]
     Active Substance: PROGESTERONE
     Indication: Product used for unknown indication
     Route: 048
  13. ESTROGEL [Concomitant]
     Active Substance: ESTRADIOL
     Indication: Product used for unknown indication
     Dosage: 0.75MG/1.25GM
  14. PHENTERMINE [Concomitant]
     Active Substance: PHENTERMINE
     Indication: Product used for unknown indication
  15. APIXABAN [Concomitant]
     Active Substance: APIXABAN
     Indication: Product used for unknown indication

REACTIONS (5)
  - Uveitis-glaucoma-hyphaema syndrome [Not Recovered/Not Resolved]
  - Iris disorder [Recovered/Resolved with Sequelae]
  - Device dislocation [Recovered/Resolved with Sequelae]
  - Device breakage [Recovered/Resolved]
  - Lens extraction [Recovered/Resolved]

NARRATIVE: CASE EVENT DATE: 20211124
